FAERS Safety Report 20999202 (Version 2)
Quarter: 2022Q3

REPORT INFORMATION
  Report Type: Spontaneous
  Country: SI (occurrence: None)
  Receive Date: 20220623
  Receipt Date: 20220701
  Transmission Date: 20221027
  Serious: Yes (Hospitalization, Disabling, Other)
  Sender: FDA-Public Use
  Company Number: 2022A224747

PATIENT
  Age: 46 Year
  Sex: Male

DRUGS (2)
  1. DAPAGLIFLOZIN [Suspect]
     Active Substance: DAPAGLIFLOZIN
     Indication: Type 2 diabetes mellitus
     Route: 048
     Dates: start: 20210317, end: 20220113
  2. OZEMPIC [Concomitant]
     Active Substance: SEMAGLUTIDE

REACTIONS (7)
  - Retinal vein occlusion [Unknown]
  - Retinal haemorrhage [Unknown]
  - Lipase increased [Unknown]
  - Amylase increased [Unknown]
  - Leukocyturia [Unknown]
  - Blood thyroid stimulating hormone decreased [Unknown]
  - Glycosuria [Unknown]

NARRATIVE: CASE EVENT DATE: 20211111
